FAERS Safety Report 6631141-6 (Version None)
Quarter: 2010Q1

REPORT INFORMATION
  Report Type: 
  Country: None (occurrence: None)
  Receive Date: 20100309
  Receipt Date: 20100225
  Transmission Date: 20100710
  Serious: Yes (Other)
  Sender: FDA-Public Use
  Company Number: 231956J10USA

PATIENT
  Age: 68 Year
  Sex: Female
  Weight: 73 kg

DRUGS (7)
  1. REBIF [Suspect]
     Indication: MULTIPLE SCLEROSIS
     Dosage: 44 MCG, 3 IN 1 WEEKS, SUBCUTANEOUS
     Route: 058
     Dates: start: 20050112, end: 20090101
  2. TENORMIN [Concomitant]
  3. ESTRACE [Concomitant]
  4. RESTORIL [Concomitant]
  5. VALIUM [Concomitant]
  6. HIGH BLOOD PRESSURE MEDICATION (ANTIHYPERTENSIVES) [Concomitant]
  7. CITALOPRAM HYDROBROMIDE [Concomitant]

REACTIONS (15)
  - AORTIC VALVE DISEASE [None]
  - ASTHENIA [None]
  - CATARACT [None]
  - DECREASED APPETITE [None]
  - FLUID RETENTION [None]
  - HAEMOGLOBIN DECREASED [None]
  - HYPOTENSION [None]
  - INSOMNIA [None]
  - MALAISE [None]
  - MITRAL VALVE DISEASE [None]
  - MUSCLE TIGHTNESS [None]
  - MYALGIA [None]
  - PAIN IN EXTREMITY [None]
  - TEMPORAL ARTERITIS [None]
  - WEIGHT DECREASED [None]
